FAERS Safety Report 5079901-X (Version None)
Quarter: 2006Q3

REPORT INFORMATION
  Report Type: 
  Country: None (occurrence: None)
  Receive Date: 20060815
  Receipt Date: 20060807
  Transmission Date: 20061208
  Serious: Yes (Hospitalization, Other)
  Sender: FDA-Public Use
  Company Number: JP-BAYER-200613392GDS

PATIENT
  Age: 75 Year
  Sex: Male

DRUGS (1)
  1. 8-HOUR BAYER [Suspect]
     Indication: CEREBRAL INFARCTION
     Route: 065

REACTIONS (7)
  - CONTUSION [None]
  - FALL [None]
  - HAEMATOMA [None]
  - HAEMORRHAGE SUBCUTANEOUS [None]
  - JAW FRACTURE [None]
  - OBSTRUCTIVE AIRWAYS DISORDER [None]
  - SWOLLEN TONGUE [None]
